FAERS Safety Report 6036488-2 (Version None)
Quarter: 2009Q1

REPORT INFORMATION
  Report Type: 
  Country: None (occurrence: None)
  Receive Date: 20090112
  Receipt Date: 20081212
  Transmission Date: 20090719
  Serious: Yes (Other)
  Sender: FDA-Public Use
  Company Number: 132486

PATIENT
  Age: 50 Year
  Sex: Female
  Weight: 78 kg

DRUGS (2)
  1. PACLITAXEL [Suspect]
     Indication: BREAST CANCER
     Dosage: 6 MG/ML, DAILY, INTRAVENOUS BOLUS
     Route: 040
     Dates: start: 20080917, end: 20080917
  2. (TRASTUZUMAB) [Concomitant]

REACTIONS (3)
  - ABDOMINAL PAIN UPPER [None]
  - NEUROPATHY PERIPHERAL [None]
  - PARAESTHESIA [None]
